FAERS Safety Report 20123135 (Version 1)
Quarter: 2021Q4

REPORT INFORMATION
  Report Type: Spontaneous
  Country: US (occurrence: US)
  Receive Date: 20211129
  Receipt Date: 20211129
  Transmission Date: 20220303
  Serious: Yes (Hospitalization)
  Sender: FDA-Public Use
  Company Number: US-JNJFOC-20211138872

PATIENT
  Age: 25 Year
  Sex: Female
  Weight: 58 kg

DRUGS (1)
  1. TYLENOL PM [Suspect]
     Active Substance: ACETAMINOPHEN\DIPHENHYDRAMINE
     Indication: Suicide attempt
     Dosage: ACETAMINOPHEN 15000 MG/ DIPHENHYDRAMINE HYDROCHLORIDE 750 MG FOR 1 DAY AT 04:00 HOURS (30 TABS IN A
     Route: 048
     Dates: start: 20010701, end: 20010701

REACTIONS (8)
  - Suicide attempt [Recovered/Resolved]
  - Pleural effusion [Recovered/Resolved]
  - Pneumonia aspiration [Recovered/Resolved]
  - Candida infection [Recovered/Resolved]
  - Escherichia infection [Recovered/Resolved]
  - Acute hepatic failure [Recovered/Resolved]
  - Acute kidney injury [Recovered/Resolved]
  - Intentional overdose [Recovered/Resolved]

NARRATIVE: CASE EVENT DATE: 20010704
